FAERS Safety Report 4389077-X (Version None)
Quarter: 2004Q2

REPORT INFORMATION
  Report Type: 
  Country: None (occurrence: None)
  Receive Date: 20040624
  Receipt Date: 20040616
  Transmission Date: 20050107
  Serious: Yes (Hospitalization, Other)
  Sender: FDA-Public Use
  Company Number: HQWYE979014JUL03

PATIENT
  Age: 50 Year
  Sex: Female
  Weight: 104.32 kg

DRUGS (12)
  1. RAPAMUNE [Suspect]
     Indication: PROPHYLAXIS AGAINST TRANSPLANT REJECTION
     Dosage: 7 MG 1X PER 1 DAY, ORAL
     Route: 048
     Dates: start: 20030312
  2. CYCLOSPORINE [Concomitant]
  3. PREDNISONE TAB [Concomitant]
  4. NORVASC [Concomitant]
  5. ASPIRIN [Concomitant]
  6. ATORVASTATIN CALCIUM [Concomitant]
  7. CLONIDINE [Concomitant]
  8. TOPROL-XL [Concomitant]
  9. RANITIDINE BISMUTH CITRATE (RANITIDINE BISMUTH CITRATE) [Concomitant]
  10. SULFAMETHOXAZOLE W/TRIMETHOPRIM (SULFAMETHOXAZOLE W/TRIMETHOPRIM) [Concomitant]
  11. INSULIN [Concomitant]
  12. ACTOS [Concomitant]

REACTIONS (3)
  - HAEMATOCRIT DECREASED [None]
  - HAEMOGLOBIN DECREASED [None]
  - VAGINAL HAEMORRHAGE [None]
